FAERS Safety Report 4294091-9 (Version None)
Quarter: 2004Q1

REPORT INFORMATION
  Report Type: 
  Country: None (occurrence: None)
  Receive Date: 20040212
  Receipt Date: 20040212
  Transmission Date: 20041129
  Serious: Yes (Other)
  Sender: FDA-Public Use
  Company Number: None

PATIENT
  Age: 69 Year
  Sex: Female
  Weight: 83.4619 kg

DRUGS (1)
  1. PROTONIX [Suspect]
     Indication: GASTRITIS
     Dosage: 1 CAPSULE DAILY
     Dates: start: 20040103, end: 20040125

REACTIONS (2)
  - OEDEMA PERIPHERAL [None]
  - RASH [None]
